FAERS Safety Report 4316582-4 (Version None)
Quarter: 2004Q1

REPORT INFORMATION
  Report Type: 
  Country: None (occurrence: None)
  Receive Date: 20040312
  Receipt Date: 20040227
  Transmission Date: 20041129
  Serious: Yes (Death)
  Sender: FDA-Public Use
  Company Number: 2004S1000606

PATIENT
  Age: 66 Year
  Sex: Male

DRUGS (2)
  1. CLOZAPINE [Suspect]
  2. CLOZAPINE [Suspect]

REACTIONS (1)
  - LUNG NEOPLASM MALIGNANT [None]
